FAERS Safety Report 16197177 (Version 11)
Quarter: 2019Q4

REPORT INFORMATION
  Report Type: Spontaneous
  Country: US (occurrence: US)
  Receive Date: 20190415
  Receipt Date: 20191223
  Transmission Date: 20200122
  Serious: Yes (Hospitalization)
  Sender: FDA-Public Use
  Company Number: US-PFIZER INC-2019157722

PATIENT
  Age: 50 Year
  Sex: Female
  Weight: 73 kg

DRUGS (11)
  1. LYRICA [Suspect]
     Active Substance: PREGABALIN
     Indication: SPINAL OSTEOARTHRITIS
     Dosage: 300 MG, 2X/DAY
     Route: 048
     Dates: start: 2015
  2. LYRICA [Suspect]
     Active Substance: PREGABALIN
     Indication: NERVE INJURY
     Dosage: 300 MG, DAILY (100 MG DURING THE DAY AND 200 MG AT NIGHT)
     Route: 048
  3. LYRICA [Suspect]
     Active Substance: PREGABALIN
     Indication: INTERVERTEBRAL DISC DISPLACEMENT
  4. LYRICA [Suspect]
     Active Substance: PREGABALIN
     Indication: BACK DISORDER
     Dosage: 200 MG, 2X/DAY
     Route: 048
     Dates: start: 2016, end: 2017
  5. LYRICA [Suspect]
     Active Substance: PREGABALIN
     Indication: NEUROPATHY PERIPHERAL
     Dosage: 500 MG, DAILY (300 MG DAILY AT BED TIME, 200 MG IN THE MORNING)
     Route: 048
  6. LYRICA [Suspect]
     Active Substance: PREGABALIN
     Indication: BALANCE DISORDER
  7. LYRICA [Suspect]
     Active Substance: PREGABALIN
     Indication: OSTEOARTHRITIS
  8. LYRICA [Suspect]
     Active Substance: PREGABALIN
     Indication: SPONDYLOLISTHESIS
  9. LYRICA [Suspect]
     Active Substance: PREGABALIN
     Indication: ARACHNOIDITIS
     Dosage: 400 MG, DAILY(100MG DURING THE DAY, 300MG AT NIGHT)
     Route: 048
  10. LYRICA [Suspect]
     Active Substance: PREGABALIN
     Indication: NEURALGIA
     Dosage: 100 MG, DAILY
     Route: 048
  11. LYRICA [Suspect]
     Active Substance: PREGABALIN
     Indication: POST LAMINECTOMY SYNDROME
     Dosage: 300 MG, 1X/DAY (BEDTIME)
     Route: 048

REACTIONS (5)
  - Incorrect dose administered [Unknown]
  - Product dispensing error [Unknown]
  - Neuralgia [Not Recovered/Not Resolved]
  - Somnolence [Not Recovered/Not Resolved]
  - Condition aggravated [Not Recovered/Not Resolved]

NARRATIVE: CASE EVENT DATE: 2015
